FAERS Safety Report 7641748-5 (Version None)
Quarter: 2011Q3

REPORT INFORMATION
  Report Type: 
  Country: None (occurrence: None)
  Receive Date: 20110728
  Receipt Date: 20110714
  Transmission Date: 20111222
  Serious: Yes (Death, Life-Threatening, Hospitalization)
  Sender: FDA-Public Use
  Company Number: DE-ROCHE-734633

PATIENT
  Sex: Male
  Weight: 68 kg

DRUGS (10)
  1. FUROSEMIDE [Concomitant]
     Route: 048
  2. DOCITON [Concomitant]
  3. CERTICAN [Concomitant]
     Indication: IMMUNOSUPPRESSION
     Route: 048
  4. CHOLESTYRAMINE [Concomitant]
     Route: 048
  5. RIBAVIRIN [Suspect]
     Route: 048
     Dates: start: 20100422, end: 20100509
  6. POLAMIDON [Concomitant]
  7. ACTONEL [Concomitant]
  8. PEGINTERFERON ALFA-2A [Suspect]
     Route: 058
     Dates: start: 20100422, end: 20100509
  9. PANTOPRAZOLE [Concomitant]
     Route: 048
  10. URSO FALK [Concomitant]
     Route: 048

REACTIONS (5)
  - HEPATIC ARTERY OCCLUSION [None]
  - RESPIRATORY FAILURE [None]
  - SEPSIS [None]
  - SEPTIC SHOCK [None]
  - ACUTE HEPATIC FAILURE [None]
